FAERS Safety Report 5391383-7 (Version None)
Quarter: 2007Q3

REPORT INFORMATION
  Report Type: 
  Country: None (occurrence: None)
  Receive Date: 20070716
  Receipt Date: 20070716
  Transmission Date: 20080115
  Serious: No
  Sender: FDA-Public Use
  Company Number: None

PATIENT
  Age: 37 Year
  Sex: Female

DRUGS (1)
  1. IFOSFAMIDE [Suspect]
     Dosage: INJECTABLE

REACTIONS (18)
  - ABNORMAL BEHAVIOUR [None]
  - ANAEMIA [None]
  - APHASIA [None]
  - ASTHENIA [None]
  - CIRCULATORY COLLAPSE [None]
  - CONVERSION DISORDER [None]
  - DISCOMFORT [None]
  - DIZZINESS [None]
  - DRUG TOXICITY [None]
  - ENCEPHALOPATHY [None]
  - LETHARGY [None]
  - MEDICATION ERROR [None]
  - MENTAL STATUS CHANGES [None]
  - NEUROTOXICITY [None]
  - PLEURAL EFFUSION [None]
  - SOMNOLENCE [None]
  - TACHYCARDIA [None]
  - UNRESPONSIVE TO STIMULI [None]
